FAERS Safety Report 14035361 (Version 1)
Quarter: 2017Q4

REPORT INFORMATION
  Report Type: Report from Study
  Country: DE (occurrence: DE)
  Receive Date: 20171003
  Receipt Date: 20171003
  Transmission Date: 20180321
  Serious: Yes (Hospitalization)
  Sender: FDA-Public Use
  Company Number: DE-BIOGEN-2017BI00434647

PATIENT
  Age: 42 Year
  Sex: Female

DRUGS (1)
  1. ZINBRYTA [Suspect]
     Active Substance: DACLIZUMAB
     Indication: MULTIPLE SCLEROSIS
     Route: 058
     Dates: start: 20170202, end: 201706

REACTIONS (6)
  - Rash generalised [Not Recovered/Not Resolved]
  - Alopecia [Not Recovered/Not Resolved]
  - Dysphagia [Recovered/Resolved]
  - Lymphadenopathy [Not Recovered/Not Resolved]
  - Eosinophil count increased [Recovered/Resolved]
  - White blood cell count increased [Recovered/Resolved]

NARRATIVE: CASE EVENT DATE: 201706
